FAERS Safety Report 4299243-X (Version None)
Quarter: 2004Q1

REPORT INFORMATION
  Report Type: 
  Country: None (occurrence: None)
  Receive Date: 20040217
  Receipt Date: 20040129
  Transmission Date: 20041129
  Serious: Yes (Hospitalization)
  Sender: FDA-Public Use
  Company Number: 191603

PATIENT
  Age: 62 Year
  Sex: Female
  Weight: 108.8633 kg

DRUGS (8)
  1. AVONEX [Suspect]
     Indication: MULTIPLE SCLEROSIS
     Dosage: 30 MCG QW IM
     Route: 030
     Dates: start: 19980101, end: 20030601
  2. AVONEX [Suspect]
     Indication: MULTIPLE SCLEROSIS
     Dosage: 30 MCG QW IM
     Route: 030
     Dates: start: 20031101
  3. CARBATROL [Concomitant]
  4. NEURONTIN [Concomitant]
  5. DETROL [Concomitant]
  6. BACLOFEN [Concomitant]
  7. MULTIVITAMIN [Concomitant]
  8. TRIAMTERENE [Concomitant]

REACTIONS (12)
  - ANKLE FRACTURE [None]
  - ASTHENIA [None]
  - BALANCE DISORDER [None]
  - BLOOD CHOLESTEROL INCREASED [None]
  - CONDITION AGGRAVATED [None]
  - DRUG LEVEL INCREASED [None]
  - ECONOMIC PROBLEM [None]
  - FALL [None]
  - MULTIPLE SCLEROSIS [None]
  - NAUSEA [None]
  - PAIN IN JAW [None]
  - TREMOR [None]
